FAERS Safety Report 5732587-0 (Version None)
Quarter: 2008Q2

REPORT INFORMATION
  Report Type: 
  Country: None (occurrence: None)
  Receive Date: 20080508
  Receipt Date: 20080502
  Transmission Date: 20081010
  Serious: Yes (Hospitalization)
  Sender: FDA-Public Use
  Company Number: US-ABBOTT-08P-163-0449989-00

PATIENT
  Sex: Female
  Weight: 56.9 kg

DRUGS (3)
  1. RITONAVIR SOFT GELATIN CAPSULES [Suspect]
     Indication: HIV INFECTION
     Route: 048
  2. PREZISTA [Concomitant]
     Indication: HIV INFECTION
  3. TMC125 [Concomitant]
     Indication: HIV INFECTION

REACTIONS (2)
  - DETOXIFICATION [None]
  - SUBSTANCE ABUSE [None]
